FAERS Safety Report 8510420-1 (Version None)
Quarter: 2012Q3

REPORT INFORMATION
  Report Type: 
  Country: None (occurrence: None)
  Receive Date: 20120714
  Receipt Date: 20120709
  Transmission Date: 20120928
  Serious: Yes (Other)
  Sender: FDA-Public Use
  Company Number: PHHY2012DE058767

PATIENT
  Age: 77 Year
  Sex: Male

DRUGS (3)
  1. RISPERIDONE [Suspect]
     Dosage: 0.25 MG, BID
  2. RISPERIDONE [Suspect]
     Dosage: 1.5 MG, DAILY
  3. RISPERIDONE [Suspect]
     Dosage: 0.25 MG, TID

REACTIONS (9)
  - DEMENTIA ALZHEIMER'S TYPE [None]
  - DEMENTIA WITH LEWY BODIES [None]
  - CEREBROVASCULAR DISORDER [None]
  - PSYCHOTIC DISORDER [None]
  - MUSCLE RIGIDITY [None]
  - MEMORY IMPAIRMENT [None]
  - PLEUROTHOTONUS [None]
  - POSTURE ABNORMAL [None]
  - EXTRAPYRAMIDAL DISORDER [None]
